FAERS Safety Report 18350378 (Version 1)
Quarter: 2020Q4

REPORT INFORMATION
  Report Type: Spontaneous
  Country: DE (occurrence: DE)
  Receive Date: 20201006
  Receipt Date: 20201006
  Transmission Date: 20210114
  Serious: Yes (Other)
  Sender: FDA-Public Use
  Company Number: NVSC2020DE263146

PATIENT
  Age: 38 Year
  Sex: Female
  Weight: 58 kg

DRUGS (1)
  1. CIPROHEXAL [CIPROFLOXACIN HYDROCHLORIDE] [Suspect]
     Active Substance: CIPROFLOXACIN HYDROCHLORIDE
     Indication: PYELONEPHRITIS
     Dosage: 500 MG, Q12H (2X T?GLICH 1 TABLETTE)
     Route: 048
     Dates: start: 20200221, end: 20200225

REACTIONS (37)
  - Aphasia [Not Recovered/Not Resolved]
  - Tension [Not Recovered/Not Resolved]
  - Hyperhidrosis [Not Recovered/Not Resolved]
  - Muscle spasms [Not Recovered/Not Resolved]
  - Sleep disorder [Not Recovered/Not Resolved]
  - Dyspepsia [Recovering/Resolving]
  - Chest discomfort [Not Recovered/Not Resolved]
  - Groin pain [Not Recovered/Not Resolved]
  - Arthralgia [Recovering/Resolving]
  - Myalgia [Not Recovered/Not Resolved]
  - Dizziness [Not Recovered/Not Resolved]
  - Cardiovascular disorder [Recovering/Resolving]
  - Restlessness [Not Recovered/Not Resolved]
  - Palpitations [Not Recovered/Not Resolved]
  - Hypotension [Not Recovered/Not Resolved]
  - Back pain [Recovering/Resolving]
  - Abdominal pain lower [Recovering/Resolving]
  - Contusion [Not Recovered/Not Resolved]
  - Alopecia [Not Recovered/Not Resolved]
  - Arthralgia [Not Recovered/Not Resolved]
  - Flatulence [Recovering/Resolving]
  - Extrasystoles [Not Recovered/Not Resolved]
  - Adverse reaction [Recovering/Resolving]
  - Meteoropathy [Not Recovered/Not Resolved]
  - Disturbance in attention [Not Recovered/Not Resolved]
  - Neck pain [Not Recovered/Not Resolved]
  - Fatigue [Not Recovered/Not Resolved]
  - Abdominal discomfort [Recovering/Resolving]
  - Muscular weakness [Not Recovered/Not Resolved]
  - Tendon pain [Not Recovered/Not Resolved]
  - Constipation [Recovering/Resolving]
  - Paraesthesia [Not Recovered/Not Resolved]
  - Arrhythmia [Not Recovered/Not Resolved]
  - Abdominal distension [Recovering/Resolving]
  - Gastrointestinal motility disorder [Recovering/Resolving]
  - Asthenia [Not Recovered/Not Resolved]
  - Pain in extremity [Recovering/Resolving]

NARRATIVE: CASE EVENT DATE: 20200221
